FAERS Safety Report 25498461 (Version 3)
Quarter: 2025Q3

REPORT INFORMATION
  Report Type: Other
  Country: EU (occurrence: EU)
  Receive Date: 20250701
  Receipt Date: 20250922
  Transmission Date: 20251021
  Serious: Yes (Congenital Anomaly, Other)
  Sender: MACLEODS
  Company Number: EU-MACLEODS PHARMA-MAC2025053693

PATIENT

DRUGS (7)
  1. TENOFOVIR DISOPROXIL [Suspect]
     Active Substance: TENOFOVIR DISOPROXIL
     Indication: Product used for unknown indication
     Dosage: 1 COURSE NOT PRIOR TO CONCEPTION AND EXPOSURE DURING SECOND  TRIMESTER AND STILL ONGOING
     Route: 064
     Dates: start: 20241107
  2. DOVATO [Suspect]
     Active Substance: DOLUTEGRAVIR SODIUM\LAMIVUDINE
     Indication: Product used for unknown indication
     Dosage: 1 COURSE TAB/CAPS NO PRIOR TO CONCEPTION AND EXPOSURE DURING SECOND TRIMESTER AND STILL ONGOING
     Route: 064
     Dates: start: 20241014
  3. VEMLIDY [Suspect]
     Active Substance: TENOFOVIR ALAFENAMIDE FUMARATE
     Indication: Product used for unknown indication
     Dosage: 1 COURSE, NO PRIOR TO CONCEPTION, EXPOSURE DURING SECOND TRIMESTER
     Route: 064
     Dates: start: 20241016, end: 20241107
  4. VEMLIDY [Suspect]
     Active Substance: TENOFOVIR ALAFENAMIDE FUMARATE
     Dosage: 1 COURSE, NO PRIOR TO CONCEPTION, EXPOSURE DURING SECOND TRIMESTER
     Route: 064
     Dates: start: 20241016, end: 20241107
  5. COTRIM [Suspect]
     Active Substance: SULFAMETHOXAZOLE\TRIMETHOPRIM
     Indication: Prophylaxis
     Route: 064
  6. METHYLDOPA [Suspect]
     Active Substance: METHYLDOPA
     Indication: Hypertension
     Route: 064
  7. NIFEDIPINE [Suspect]
     Active Substance: NIFEDIPINE
     Indication: Hypertension
     Route: 064

REACTIONS (2)
  - Kidney duplex [Unknown]
  - Foetal exposure during pregnancy [Unknown]
